FAERS Safety Report 7419713-2 (Version None)
Quarter: 2011Q2

REPORT INFORMATION
  Report Type: 
  Country: None (occurrence: None)
  Receive Date: 20110418
  Receipt Date: 20110405
  Transmission Date: 20111010
  Serious: Yes (Hospitalization, Other)
  Sender: FDA-Public Use
  Company Number: ES-ELI_LILLY_AND_COMPANY-ES201104001334

PATIENT
  Sex: Female
  Weight: 65 kg

DRUGS (18)
  1. FORTEO [Suspect]
     Dosage: 20 UG, QD
     Route: 048
  2. DENUBIL [Concomitant]
     Dosage: 5 MG, QD
     Route: 048
  3. SINTROM [Concomitant]
     Indication: ARRHYTHMIA
     Dosage: 4 MG, PRN
     Route: 048
  4. LANACORDIN [Concomitant]
     Indication: ARRHYTHMIA
     Dosage: 2.5 ML, QD
     Route: 048
     Dates: start: 20110404
  5. TRAMADOL [Concomitant]
     Indication: ANALGESIC THERAPY
     Dosage: 50 MG, QD
     Route: 048
  6. MANIDON [Concomitant]
     Indication: HYPERTENSION
     Dosage: 80 MG, QD
     Route: 048
  7. EZETIMIBE [Concomitant]
     Indication: BLOOD CHOLESTEROL
     Dosage: 10 MG, QD
     Route: 048
  8. MASDIL [Concomitant]
     Indication: ARRHYTHMIA
     Dosage: 60 MG, TID
     Route: 048
     Dates: start: 20110331
  9. FORTEO [Suspect]
     Indication: OSTEOPOROSIS
     Dosage: 20 UG, QD
     Route: 058
     Dates: start: 20090901, end: 20110227
  10. LORAZEPAM [Concomitant]
     Indication: SLEEP DISORDER
     Dosage: 1 MG, QD
     Route: 048
  11. TORSEMIDE [Concomitant]
     Indication: DIURETIC THERAPY
     Dosage: 10 MG, QD
     Route: 048
  12. ARCOXIA [Concomitant]
     Indication: BONE DISORDER
     Dosage: 60 MG, QD
     Route: 048
  13. METFORMIN HCL [Concomitant]
     Indication: DIABETES MELLITUS
     Dosage: 850 MG, TID
     Route: 048
  14. CARDURA [Concomitant]
     Indication: HYPERTENSION
     Dosage: 8 MG, QD
     Route: 048
  15. FERROPROTINA [Concomitant]
     Indication: ANAEMIA
     Dosage: 20 MG, BID
     Route: 048
  16. IRBESARTAN AND HYDROCHLOROTHIAZIDE [Concomitant]
     Indication: HYPERTENSION
     Dosage: UNK, QD
     Route: 048
     Dates: start: 20110301
  17. ATORVASTATIN [Concomitant]
     Indication: BLOOD CHOLESTEROL
     Dosage: 40 MG, QD
     Route: 048
  18. FORTEO [Suspect]
     Dosage: 20 UG, QD
     Route: 058
     Dates: start: 20110307, end: 20110329

REACTIONS (3)
  - GENERAL PHYSICAL HEALTH DETERIORATION [None]
  - CARDIAC FAILURE [None]
  - ANAEMIA [None]
